FAERS Safety Report 7669348-1 (Version None)
Quarter: 2011Q3

REPORT INFORMATION
  Report Type: 
  Country: None (occurrence: None)
  Receive Date: 20110808
  Receipt Date: 20110728
  Transmission Date: 20111222
  Serious: Yes (Other)
  Sender: FDA-Public Use
  Company Number: US-ROCHE-728103

PATIENT
  Sex: Female
  Weight: 54.4 kg

DRUGS (1)
  1. ACCUTANE [Suspect]
     Indication: ACNE
     Route: 065
     Dates: start: 19960101, end: 19970101

REACTIONS (5)
  - COLITIS ULCERATIVE [None]
  - COLONIC POLYP [None]
  - ORAL HERPES [None]
  - IRRITABLE BOWEL SYNDROME [None]
  - THROMBOSIS [None]
